FAERS Safety Report 25008957 (Version 2)
Quarter: 2025Q2

REPORT INFORMATION
  Report Type: Spontaneous
  Country: US (occurrence: US)
  Receive Date: 20250225
  Receipt Date: 20250618
  Transmission Date: 20250716
  Serious: No
  Sender: BRISTOL-MYERS SQUIBB COMPANY
  Company Number: US-BRISTOL-MYERS SQUIBB COMPANY-2025-027366

PATIENT
  Age: 80 Year
  Sex: Female

DRUGS (1)
  1. REVLIMID [Suspect]
     Active Substance: LENALIDOMIDE
     Indication: Diffuse large B-cell lymphoma
     Route: 048
     Dates: start: 20250218

REACTIONS (10)
  - Rash [Unknown]
  - Off label use [Unknown]
  - Pruritus [Unknown]
  - Ear pruritus [Unknown]
  - Headache [Unknown]
  - Sensation of blood flow [Unknown]
  - Disturbance in attention [Unknown]
  - Brain fog [Unknown]
  - Vision blurred [Unknown]
  - Feeling drunk [Unknown]

NARRATIVE: CASE EVENT DATE: 20250228
